FAERS Safety Report 19624821 (Version 6)
Quarter: 2025Q1

REPORT INFORMATION
  Report Type: Spontaneous
  Country: US (occurrence: US)
  Receive Date: 20210728
  Receipt Date: 20250116
  Transmission Date: 20250408
  Serious: No
  Sender: PFIZER
  Company Number: US-PFIZER INC-2021330135

PATIENT
  Age: 53 Year
  Sex: Female

DRUGS (7)
  1. IBRANCE [Suspect]
     Active Substance: PALBOCICLIB
     Indication: Breast cancer female
     Dosage: 100 MG, DAILY
     Route: 048
  2. IBRANCE [Suspect]
     Active Substance: PALBOCICLIB
     Dates: start: 20210303
  3. IBRANCE [Suspect]
     Active Substance: PALBOCICLIB
     Dates: start: 20210329
  4. IBRANCE [Suspect]
     Active Substance: PALBOCICLIB
     Dates: start: 20210403
  5. IBRANCE [Suspect]
     Active Substance: PALBOCICLIB
     Dates: start: 20210412
  6. IBRANCE [Suspect]
     Active Substance: PALBOCICLIB
     Route: 048
     Dates: start: 202104
  7. TAMOXIFEN [Concomitant]
     Active Substance: TAMOXIFEN

REACTIONS (17)
  - Ageusia [Unknown]
  - Alopecia [Not Recovered/Not Resolved]
  - Asthenia [Not Recovered/Not Resolved]
  - Constipation [Unknown]
  - Decreased appetite [Recovered/Resolved]
  - Diarrhoea [Unknown]
  - Fatigue [Not Recovered/Not Resolved]
  - Nausea [Unknown]
  - Oedema peripheral [Not Recovered/Not Resolved]
  - Peripheral swelling [Not Recovered/Not Resolved]
  - Red blood cell count increased [Unknown]
  - Stomatitis [Unknown]
  - Full blood count abnormal [Recovered/Resolved]
  - Dyspepsia [Unknown]
  - Hot flush [Not Recovered/Not Resolved]
  - Condition aggravated [Unknown]
  - Full blood count decreased [Unknown]
